FAERS Safety Report 9896038 (Version 1)
Quarter: 2014Q1

REPORT INFORMATION
  Report Type: Spontaneous
  Country: US (occurrence: US)
  Receive Date: 20140213
  Receipt Date: 20140213
  Transmission Date: 20141002
  Serious: No
  Sender: FDA-Public Use
  Company Number: US-BRISTOL-MYERS SQUIBB COMPANY-19012335

PATIENT
  Age: 74 Year
  Sex: Female
  Weight: 70.29 kg

DRUGS (9)
  1. ABATACEPT SUBQ INJECTION 125MG/ML [Suspect]
     Dosage: 1DF:125MG/ML
     Route: 058
  2. PREDNISONE [Concomitant]
     Dosage: TABS
  3. ACTONEL [Concomitant]
  4. CALCIUM [Concomitant]
     Dosage: TABS
  5. MAXZIDE [Concomitant]
     Dosage: TABS
  6. FOLIC ACID [Concomitant]
     Dosage: TABS
  7. XANAX [Concomitant]
     Dosage: TABS
  8. ZOCOR [Concomitant]
     Dosage: TABS
  9. METHOTREXATE [Concomitant]
     Dosage: TABS

REACTIONS (1)
  - Injection site pain [Unknown]
